FAERS Safety Report 6301338-3 (Version None)
Quarter: 2009Q3

REPORT INFORMATION
  Report Type: 
  Country: None (occurrence: None)
  Receive Date: 20090807
  Receipt Date: 20090727
  Transmission Date: 20100115
  Serious: Yes (Other)
  Sender: FDA-Public Use
  Company Number: BR-PFIZER INC-2009246135

PATIENT
  Age: 2 Year

DRUGS (3)
  1. XALATAN [Suspect]
     Indication: GLAUCOMA
     Dosage: UNK
     Route: 047
     Dates: start: 20090301
  2. COSOPT [Concomitant]
     Dosage: UNK
  3. PRED FORTE [Concomitant]
     Dosage: UNK

REACTIONS (5)
  - DRUG INEFFECTIVE [None]
  - EYE DISORDER [None]
  - SURGERY [None]
  - VISION BLURRED [None]
  - VISUAL ACUITY REDUCED [None]
